FAERS Safety Report 21024253 (Version 10)
Quarter: 2025Q2

REPORT INFORMATION
  Report Type: Report from Study
  Country: DE (occurrence: DE)
  Receive Date: 20220629
  Receipt Date: 20250521
  Transmission Date: 20250717
  Serious: No
  Sender: TAKEDA
  Company Number: DE-TAKEDA-2022TUS042536

PATIENT
  Age: 47 Year
  Sex: Female

DRUGS (57)
  1. TEDUGLUTIDE [Suspect]
     Active Substance: TEDUGLUTIDE
     Indication: Short-bowel syndrome
     Dosage: 2.45 MILLIGRAM, QD
     Dates: start: 20170719, end: 20170720
  2. TEDUGLUTIDE [Suspect]
     Active Substance: TEDUGLUTIDE
     Dosage: 1.25 MILLIGRAM, QD
     Dates: start: 20170720, end: 201806
  3. TEDUGLUTIDE [Suspect]
     Active Substance: TEDUGLUTIDE
     Dosage: 2.4 MILLIGRAM, QD
     Dates: start: 201806, end: 201903
  4. TEDUGLUTIDE [Suspect]
     Active Substance: TEDUGLUTIDE
     Dosage: 2 MILLIGRAM, QD
     Dates: start: 201903, end: 20200806
  5. DARBEPOETIN ALFA [Concomitant]
     Active Substance: DARBEPOETIN ALFA
     Indication: Product used for unknown indication
     Dosage: 40 MICROGRAM, MONTHLY
     Dates: start: 2022
  6. ATORVASTATIN [Concomitant]
     Active Substance: ATORVASTATIN
     Indication: Ischaemic stroke
     Dosage: 20 MILLIGRAM, QD
     Dates: start: 2022
  7. TORSEMIDE [Concomitant]
     Active Substance: TORSEMIDE
     Indication: Hypervolaemia
     Dosage: 2.5 MILLIGRAM, QD
     Dates: start: 201906
  8. TORSEMIDE [Concomitant]
     Active Substance: TORSEMIDE
     Dosage: 10 MILLIGRAM, BID
     Dates: start: 202206
  9. TORSEMIDE [Concomitant]
     Active Substance: TORSEMIDE
  10. DULOXETINE [Concomitant]
     Active Substance: DULOXETINE
     Indication: Depression
     Dosage: 30 MILLIGRAM, QD
     Dates: start: 2022, end: 2022
  11. ESCITALOPRAM [Concomitant]
     Active Substance: ESCITALOPRAM OXALATE
  12. POTASSIUM CHLORIDE [Concomitant]
     Active Substance: POTASSIUM CHLORIDE
     Indication: Supplementation therapy
     Dosage: 780 MILLIGRAM, QOD
     Dates: start: 20221207
  13. POTASSIUM CHLORIDE [Concomitant]
     Active Substance: POTASSIUM CHLORIDE
     Dosage: 780 MILLIGRAM, QOD
     Dates: start: 20220810
  14. VITAMIN D [Concomitant]
     Active Substance: VITAMIN D NOS
     Indication: Vitamin D deficiency
     Dosage: 2000 INTERNATIONAL UNIT, QD
     Dates: start: 201903
  15. VITAMIN D [Concomitant]
     Active Substance: VITAMIN D NOS
  16. TAUROLIDINE [Concomitant]
     Active Substance: TAUROLIDINE
     Indication: Product used for unknown indication
  17. Jonosteril [Concomitant]
     Indication: Product used for unknown indication
     Dosage: 500 MILLILITER, 2/WEEK
     Dates: start: 202304
  18. IRON [Concomitant]
     Active Substance: IRON
     Indication: Product used for unknown indication
     Dosage: UNK UNK, SINGLE
     Dates: start: 202302, end: 202302
  19. BISOPROLOL [Concomitant]
     Active Substance: BISOPROLOL
     Indication: Hypertension
     Dosage: 5 MILLIGRAM, BID
     Dates: start: 2017
  20. SIMVASTATIN [Concomitant]
     Active Substance: SIMVASTATIN
     Indication: Cardiovascular disorder
     Dosage: 20 MILLIGRAM, QD
  21. SIMVASTATIN [Concomitant]
     Active Substance: SIMVASTATIN
     Dosage: 160 MILLIGRAM, BID
     Dates: start: 2017
  22. ERGOCALCIFEROL\PHYTONADIONE\RETINOL\TOCOPHEROL [Concomitant]
     Active Substance: ERGOCALCIFEROL\PHYTONADIONE\RETINOL\TOCOPHEROL
     Indication: Vitamin supplementation
  23. EDOXABAN [Concomitant]
     Active Substance: EDOXABAN
     Indication: Coagulopathy
     Dosage: 30 MILLIGRAM, QD
  24. LEVOTHYROXINE SODIUM [Concomitant]
     Active Substance: LEVOTHYROXINE SODIUM
     Indication: Hypothyroidism
     Dosage: 100 MICROGRAM, QD
  25. LEVOTHYROXINE SODIUM [Concomitant]
     Active Substance: LEVOTHYROXINE SODIUM
     Dosage: 200 MICROGRAM, TID
     Dates: start: 201906
  26. LEVOTHYROXINE SODIUM [Concomitant]
     Active Substance: LEVOTHYROXINE SODIUM
     Dosage: 50 MICROGRAM, QD
     Dates: start: 20201101
  27. ZINC [Concomitant]
     Active Substance: ZINC
     Indication: Zinc deficiency
     Dosage: 15 MILLIGRAM, QD
     Dates: start: 20190801, end: 20240729
  28. CANDESARTAN [Concomitant]
     Active Substance: CANDESARTAN
     Indication: Hypertension
     Dosage: 16 MILLIGRAM, BID
     Dates: start: 201906
  29. DIHYDRALAZINE [Concomitant]
     Active Substance: DIHYDRALAZINE
     Indication: Hypertension
  30. PROMETHAZINE [Concomitant]
     Active Substance: PROMETHAZINE HYDROCHLORIDE
  31. NITROGLYCERIN [Concomitant]
     Active Substance: NITROGLYCERIN
     Indication: Hypertension
  32. LOPERAMIDE [Concomitant]
     Active Substance: LOPERAMIDE
     Indication: Diarrhoea
  33. VALSARTAN [Concomitant]
     Active Substance: VALSARTAN
     Indication: Hypertension
     Dosage: 160 MILLIGRAM, BID
     Dates: start: 20200731
  34. SPIRONOLACTONE [Concomitant]
     Active Substance: SPIRONOLACTONE
     Indication: Prophylaxis
     Dosage: 50 MILLIGRAM, BID
     Dates: start: 20200616
  35. PANTOPRAZOLE [Concomitant]
     Active Substance: PANTOPRAZOLE
     Indication: Prophylaxis
     Dosage: 40 MILLIGRAM, BID
     Dates: start: 201907
  36. MESALAMINE [Concomitant]
     Active Substance: MESALAMINE
     Indication: Colitis ulcerative
     Dosage: 1.5 GRAM, QD
     Dates: start: 201907
  37. LERCANIDIPINE [Concomitant]
     Active Substance: LERCANIDIPINE
     Indication: Hypertension
     Dosage: 20 MILLIGRAM, QD
     Dates: start: 202006
  38. NITROGLYCERIN [Concomitant]
     Active Substance: NITROGLYCERIN
  39. CHOLECALCIFEROL [Concomitant]
     Active Substance: CHOLECALCIFEROL
     Indication: Vitamin D deficiency
     Dosage: 20000 INTERNATIONAL UNIT, Q2WEEKS
     Dates: start: 202207, end: 20221207
  40. DOXAZOSIN [Concomitant]
     Active Substance: DOXAZOSIN MESYLATE
     Indication: Hypertension
     Dosage: 8 MILLIGRAM, QD
     Dates: start: 20190801
  41. FOLIC ACID [Concomitant]
     Active Substance: FOLIC ACID
     Indication: Folate deficiency
     Dosage: 5 MILLIGRAM, 1/WEEK
     Dates: start: 202007
  42. Selenase [Concomitant]
     Dosage: 100 MICROGRAM, QD
     Dates: start: 20180701
  43. KONAKION [Concomitant]
     Active Substance: PHYTONADIONE
     Indication: Hypovitaminosis
     Dosage: 2 MILLIGRAM, QD
     Dates: start: 202006
  44. CHOLESTYRAMINE [Concomitant]
     Active Substance: CHOLESTYRAMINE
  45. CHOLESTYRAMINE [Concomitant]
     Active Substance: CHOLESTYRAMINE
     Dates: start: 20220810, end: 20240725
  46. SODIUM BICARBONATE [Concomitant]
     Active Substance: SODIUM BICARBONATE
     Indication: Short-bowel syndrome
     Dosage: 100 MILLILITER, QD
     Dates: start: 202008
  47. PANCRELIPASE [Concomitant]
     Active Substance: PANCRELIPASE
     Indication: Dyspepsia
  48. ARANESP [Concomitant]
     Active Substance: DARBEPOETIN ALFA
  49. METAMIZOLE [Concomitant]
     Active Substance: METAMIZOLE
  50. SODIUM [Concomitant]
     Active Substance: SODIUM
  51. SODIUM BICARBONATE [Concomitant]
     Active Substance: SODIUM BICARBONATE
  52. MOMETASONE [Concomitant]
     Active Substance: MOMETASONE
     Dosage: 50 MILLIGRAM, BID
     Route: 061
     Dates: start: 20220810
  53. SODIUM BICARBONATE [Concomitant]
     Active Substance: SODIUM BICARBONATE
     Dosage: 1 GRAM, BID
     Dates: start: 20240228
  54. AMITRIPTYLINE HYDROCHLORIDE [Concomitant]
     Active Substance: AMITRIPTYLINE HYDROCHLORIDE
     Indication: Abnormal faeces
     Dosage: 10 MILLIGRAM, QD
     Dates: start: 202407
  55. Kalinor [Concomitant]
  56. Lipocol [Concomitant]
  57. PREDNISOLONE [Concomitant]
     Active Substance: PREDNISOLONE
     Dosage: 30 MILLIGRAM, BID
     Dates: start: 20240725, end: 20240725

REACTIONS (4)
  - Anorectal polyp [Recovered/Resolved]
  - Mucosal inflammation [Recovered/Resolved]
  - Chest discomfort [Recovered/Resolved]
  - Diastolic dysfunction [Not Recovered/Not Resolved]

NARRATIVE: CASE EVENT DATE: 20220513
